FAERS Safety Report 7747583-1 (Version None)
Quarter: 2011Q3

REPORT INFORMATION
  Report Type: 
  Country: None (occurrence: None)
  Receive Date: 20110913
  Receipt Date: 20110905
  Transmission Date: 20111222
  Serious: Yes (Hospitalization)
  Sender: FDA-Public Use
  Company Number: FR-ELI_LILLY_AND_COMPANY-FR201107005535

PATIENT
  Sex: Male

DRUGS (16)
  1. MEDROL [Concomitant]
  2. HUMALOG [Concomitant]
  3. KEPPRA [Concomitant]
  4. TANAKAN [Concomitant]
  5. LANTUS [Concomitant]
  6. UVEDOSE [Concomitant]
  7. PRAVASTATIN [Concomitant]
  8. AMARYL [Concomitant]
  9. PANTOPRAZOLE [Concomitant]
  10. ZOLOFT [Concomitant]
  11. CARBOPLATIN [Concomitant]
     Indication: LUNG ADENOCARCINOMA METASTATIC
     Dosage: UNK
     Route: 042
     Dates: start: 20110404
  12. SPECIAFOLDINE [Concomitant]
  13. IMOVANE [Concomitant]
  14. NITRAZEPAM [Concomitant]
  15. PHOSPHONEUROS [Concomitant]
  16. ALIMTA [Suspect]
     Indication: LUNG ADENOCARCINOMA METASTATIC
     Dosage: 500 MG, UNKNOWN
     Route: 042
     Dates: start: 20110404

REACTIONS (7)
  - LEUKOPENIA [None]
  - CATHETER SITE INFLAMMATION [None]
  - CATHETER SITE PAIN [None]
  - THROMBOCYTOPENIA [None]
  - LUNG DISORDER [None]
  - NEUTROPENIA [None]
  - HAEMOPTYSIS [None]
